FAERS Safety Report 4838103-X (Version None)
Quarter: 2005Q4

REPORT INFORMATION
  Report Type: 
  Country: None (occurrence: None)
  Receive Date: 20051123
  Receipt Date: 20051123
  Transmission Date: 20060501
  Serious: Yes (Life-Threatening)
  Sender: FDA-Public Use
  Company Number: None

PATIENT
  Sex: Female

DRUGS (10)
  1. AVELOX [Suspect]
     Indication: SALPINGITIS
     Dosage: UTA
  2. PREDNISONE [Concomitant]
  3. NIFEDIPINE [Concomitant]
  4. COREG [Concomitant]
  5. PHOSLO [Concomitant]
  6. PRILOSEC [Concomitant]
  7. COLACE [Concomitant]
  8. LASIX [Concomitant]
  9. LISINOPRIL [Concomitant]
  10. FLAGYL [Concomitant]

REACTIONS (7)
  - ANGIONEUROTIC OEDEMA [None]
  - CHEST PAIN [None]
  - DIALYSIS [None]
  - DYSPNOEA [None]
  - HYPERTENSION [None]
  - PYREXIA [None]
  - SALPINGITIS [None]
